FAERS Safety Report 18112405 (Version 3)
Quarter: 2021Q2

REPORT INFORMATION
  Report Type: Report from Study
  Country: CA (occurrence: CA)
  Receive Date: 20200805
  Receipt Date: 20210619
  Transmission Date: 20210717
  Serious: Yes (Other)
  Sender: FDA-Public Use
  Company Number: NVSC2020CA186472

PATIENT
  Sex: Male

DRUGS (6)
  1. AVASTIN [Concomitant]
     Active Substance: BEVACIZUMAB
     Dosage: UNK ( 2 WEEKS INTERVAL FROM EYLEA)
     Route: 065
     Dates: start: 20171219
  2. AVASTIN [Concomitant]
     Active Substance: BEVACIZUMAB
     Indication: AGE-RELATED MACULAR DEGENERATION
     Dosage: UNK (RIGHT EYE Q/4 WEEKS)
     Route: 065
     Dates: start: 20140110, end: 20160221
  3. LUCENTIS [Suspect]
     Active Substance: RANIBIZUMAB
     Indication: NEOVASCULAR AGE-RELATED MACULAR DEGENERATION
     Dosage: 1 DF
     Route: 031
     Dates: start: 20181129, end: 20190528
  4. LUCENTIS [Suspect]
     Active Substance: RANIBIZUMAB
     Dosage: 1 DF
     Route: 031
  5. EYLEA [Concomitant]
     Active Substance: AFLIBERCEPT
     Indication: AGE-RELATED MACULAR DEGENERATION
     Dosage: UNK, Q4W
     Route: 065
     Dates: start: 20160224
  6. BEOVU [Suspect]
     Active Substance: BROLUCIZUMAB-DBLL
     Indication: NEOVASCULAR AGE-RELATED MACULAR DEGENERATION
     Dosage: 6 MG (0.005 ML) (RIGHT EYE)
     Route: 031
     Dates: start: 20210605

REACTIONS (2)
  - Drug ineffective [Unknown]
  - Retinal oedema [Unknown]
